FAERS Safety Report 9831572 (Version 1)
Quarter: 2014Q1

REPORT INFORMATION
  Report Type: Spontaneous
  Country: US (occurrence: US)
  Receive Date: 20140121
  Receipt Date: 20140121
  Transmission Date: 20141002
  Serious: Yes (Hospitalization, Other)
  Sender: FDA-Public Use
  Company Number: US-ELI_LILLY_AND_COMPANY-US201401003102

PATIENT
  Sex: Female

DRUGS (13)
  1. EFFIENT [Suspect]
     Indication: STENT PLACEMENT
     Dosage: 10 MG, QD
  2. ASPIRIN [Concomitant]
  3. FUROSEMIDE [Concomitant]
  4. LISINOPRIL [Concomitant]
  5. AMLODIPINE [Concomitant]
  6. METOPROLOL [Concomitant]
  7. BUPROPION [Concomitant]
  8. ISOSORBIDE MONONITRATE [Concomitant]
  9. SPIRONOLACTONE [Concomitant]
  10. PRAVASTATIN [Concomitant]
  11. MELOXICAM [Concomitant]
  12. NITROGLYCERINE [Concomitant]
  13. LORAZEPAM [Concomitant]

REACTIONS (1)
  - Myocardial infarction [Unknown]
